FAERS Safety Report 8006908 (Version 4)
Quarter: 2013Q3

REPORT INFORMATION
  Report Type: Report from Study
  Country: US (occurrence: US)
  Receive Date: 20110623
  Receipt Date: 20130925
  Transmission Date: 20140515
  Serious: Yes (Hospitalization)
  Sender: FDA-Public Use
  Company Number: US-UCBSA-035323

PATIENT
  Age: 20 Year
  Sex: Female
  Weight: 63.8 kg

DRUGS (4)
  1. CIMZIA [Suspect]
     Indication: CROHN^S DISEASE
     Route: 058
     Dates: start: 20110104
  2. METHOTREXATE [Concomitant]
     Indication: CROHN^S DISEASE
     Dosage: UNKNOWN DOSE
     Dates: start: 20100326
  3. MULTIVITAMIN [Concomitant]
     Dosage: 1 TABLET ONCE DAILY
     Route: 048
  4. QUETIAPINE [Concomitant]
     Indication: DEPRESSION
     Route: 048
     Dates: start: 20101221

REACTIONS (2)
  - Post procedural infection [Recovered/Resolved]
  - Abdominal pain [Recovered/Resolved]
